FAERS Safety Report 18411474 (Version 1)
Quarter: 2020Q4

REPORT INFORMATION
  Report Type: Other
  Country: ES (occurrence: ES)
  Receive Date: 20201021
  Receipt Date: 20201021
  Transmission Date: 20210114
  Serious: Yes (Death, Other)
  Sender: FDA-Public Use
  Company Number: ES-VALIDUS PHARMACEUTICALS LLC-ES-2020VAL000829

PATIENT

DRUGS (3)
  1. FUROSEMIDE. [Suspect]
     Active Substance: FUROSEMIDE
     Indication: CARDIAC FAILURE
     Dosage: 80 MG, QD (40MG (1-1-0))
     Route: 048
     Dates: start: 20200521, end: 20200726
  2. ENALAPRIL MALEATE. [Suspect]
     Active Substance: ENALAPRIL MALEATE
     Indication: HYPERTENSION
     Dosage: 5 MG, QD (5MG (1/2-0-1/2))
     Route: 048
     Dates: start: 20200513, end: 20200726
  3. SPIRONOLACTONE. [Suspect]
     Active Substance: SPIRONOLACTONE
     Indication: CARDIAC FAILURE
     Dosage: 25 MG, QD (25 MG DAY)
     Route: 048
     Dates: start: 20200521, end: 20200726

REACTIONS (2)
  - Acute kidney injury [Fatal]
  - Drug interaction [Unknown]

NARRATIVE: CASE EVENT DATE: 20200726
